FAERS Safety Report 5774313-5 (Version None)
Quarter: 2008Q2

REPORT INFORMATION
  Report Type: 
  Country: None (occurrence: None)
  Receive Date: 20080616
  Receipt Date: 20080610
  Transmission Date: 20081010
  Serious: Yes (Hospitalization)
  Sender: FDA-Public Use
  Company Number: US-BAXTER-2008BH004855

PATIENT
  Age: 68 Year
  Sex: Male

DRUGS (3)
  1. ATIVAN [Suspect]
     Indication: DRUG USE FOR UNKNOWN INDICATION
     Dosage: DOSE UNIT:UNKNOWN
     Route: 065
  2. REVLIMID [Suspect]
     Indication: MULTIPLE MYELOMA
     Route: 048
     Dates: start: 20080318
  3. REVLIMID [Suspect]
     Route: 048
     Dates: start: 20080214, end: 20080312

REACTIONS (3)
  - PULMONARY THROMBOSIS [None]
  - RASH [None]
  - SOMNOLENCE [None]
